APPROVED DRUG PRODUCT: PHRENILIN FORTE
Active Ingredient: ACETAMINOPHEN; BUTALBITAL
Strength: 650MG;50MG
Dosage Form/Route: CAPSULE;ORAL
Application: A088831 | Product #001
Applicant: VALEANT PHARMACEUTICALS INTERNATIONAL
Approved: Jun 19, 1985 | RLD: No | RS: No | Type: DISCN